FAERS Safety Report 24232362 (Version 1)
Quarter: 2024Q3

REPORT INFORMATION
  Report Type: Spontaneous
  Country: KR (occurrence: KR)
  Receive Date: 20240821
  Receipt Date: 20240821
  Transmission Date: 20241017
  Serious: Yes (Other)
  Sender: PFIZER
  Company Number: KR-PFIZER INC-202400234094

PATIENT
  Age: 66 Year
  Sex: Female

DRUGS (2)
  1. PAXLOVID [Suspect]
     Active Substance: NIRMATRELVIR\RITONAVIR
     Indication: COVID-19 treatment
     Dosage: [NIRMATRELVIR 150 MG]/[RITONAVIR 100 MG]; 2X/DAY
     Route: 048
     Dates: start: 20240810, end: 20240811
  2. TACROLIMUS [Concomitant]
     Active Substance: TACROLIMUS
     Indication: Immunosuppression
     Dosage: 1 DF, DAILY

REACTIONS (13)
  - Pruritus [Recovering/Resolving]
  - Dizziness [Recovering/Resolving]
  - Erythema [Recovering/Resolving]
  - Swelling [Recovering/Resolving]
  - Abdominal pain [Recovering/Resolving]
  - Headache [Recovering/Resolving]
  - Feeling hot [Recovering/Resolving]
  - Malaise [Recovering/Resolving]
  - Heart rate increased [Recovering/Resolving]
  - Dysuria [Recovering/Resolving]
  - Insomnia [Recovering/Resolving]
  - Genital pain [Recovering/Resolving]
  - Genital burning sensation [Recovering/Resolving]

NARRATIVE: CASE EVENT DATE: 20240811
